FAERS Safety Report 19898807 (Version 1)
Quarter: 2021Q3

REPORT INFORMATION
  Report Type: Spontaneous
  Country: JP (occurrence: JP)
  Receive Date: 20210929
  Receipt Date: 20210929
  Transmission Date: 20211014
  Serious: Yes (Life-Threatening, Other)
  Sender: FDA-Public Use
  Company Number: JP-BRISTOL-MYERS SQUIBB COMPANY-BMS-2021-015298

PATIENT
  Age: 73 Year
  Sex: Male
  Weight: 63.8 kg

DRUGS (4)
  1. OPDIVO [Suspect]
     Active Substance: NIVOLUMAB
     Dosage: 240 MILLIGRAM
     Route: 041
     Dates: start: 20210128, end: 20210311
  2. YERVOY [Suspect]
     Active Substance: IPILIMUMAB
     Indication: COLORECTAL CANCER
     Dosage: 1 MILLIGRAM/KILOGRAM
     Route: 041
     Dates: start: 20210107
  3. OPDIVO [Suspect]
     Active Substance: NIVOLUMAB
     Indication: COLORECTAL CANCER
     Dosage: 240 MILLIGRAM
     Route: 041
     Dates: start: 20210107
  4. YERVOY [Suspect]
     Active Substance: IPILIMUMAB
     Dosage: 1 MILLIGRAM/KILOGRAM
     Route: 041
     Dates: start: 20210128, end: 202103

REACTIONS (5)
  - Secondary adrenocortical insufficiency [Recovering/Resolving]
  - Malignant neoplasm progression [Unknown]
  - Arthralgia [Unknown]
  - Drug-device incompatibility [Unknown]
  - Adrenocorticotropic hormone deficiency [Recovering/Resolving]

NARRATIVE: CASE EVENT DATE: 202103
